FAERS Safety Report 9719250 (Version 2)
Quarter: 2014Q1

REPORT INFORMATION
  Report Type: Report from Study
  Country: NL (occurrence: NL)
  Receive Date: 20131127
  Receipt Date: 20140106
  Transmission Date: 20141002
  Serious: Yes (Other)
  Sender: FDA-Public Use
  Company Number: PHHY2013NL136031

PATIENT
  Sex: Male

DRUGS (5)
  1. ZOMETA [Suspect]
     Indication: METASTASIS
     Dosage: 6 MG, ONCE EVERY 4 WEEKS
     Route: 042
  2. ZOMETA [Suspect]
     Indication: TRANSITIONAL CELL CARCINOMA
     Dosage: 6 MG, ONCE EVERY 4 WEEKS
     Route: 042
     Dates: start: 20120628
  3. ZOMETA [Suspect]
     Dosage: 6 MG, ONCE EVERY 4 WEEKS
     Route: 042
     Dates: start: 20131010
  4. ZOMETA [Suspect]
     Dosage: 6 MG, ONCE EVERY 4 WEEKS
     Route: 042
     Dates: start: 20131122
  5. ZOMETA [Suspect]
     Dosage: UNK UKN, UNK
     Dates: start: 20140102

REACTIONS (3)
  - Urethral cancer metastatic [Unknown]
  - Metastases to neck [Unknown]
  - Neck mass [Unknown]
